FAERS Safety Report 22352257 (Version 1)
Quarter: 2023Q2

REPORT INFORMATION
  Report Type: Spontaneous
  Country: US (occurrence: US)
  Receive Date: 20230522
  Receipt Date: 20230522
  Transmission Date: 20230721
  Serious: Yes (Other)
  Sender: FDA-Public Use
  Company Number: US-CLARIONBRANDS-2023-US-012952

PATIENT
  Sex: Female

DRUGS (1)
  1. ABSORBINE JR. [Suspect]
     Active Substance: MENTHOL
     Indication: Product used for unknown indication
     Route: 061

REACTIONS (2)
  - Application site pain [Unknown]
  - Burns third degree [Unknown]
